FAERS Safety Report 14182499 (Version 2)
Quarter: 2017Q4

REPORT INFORMATION
  Report Type: Spontaneous
  Country: US (occurrence: US)
  Receive Date: 20171113
  Receipt Date: 20171204
  Transmission Date: 20180321
  Serious: No
  Sender: FDA-Public Use
  Company Number: US-PFIZER INC-2017483986

PATIENT
  Age: 23 Year
  Sex: Female

DRUGS (1)
  1. EUCRISA [Suspect]
     Active Substance: CRISABOROLE
     Indication: DERMATITIS ATOPIC
     Dosage: 2% APPLIED TOPICALLY TO CHEST AND NECK, TWICE A DAY
     Route: 061

REACTIONS (3)
  - Application site pruritus [Recovered/Resolved]
  - Skin tightness [Recovered/Resolved]
  - Skin discolouration [Unknown]
